FAERS Safety Report 10377642 (Version 1)
Quarter: 2014Q3

REPORT INFORMATION
  Report Type: Spontaneous
  Country: US (occurrence: None)
  Receive Date: 20140811
  Receipt Date: 20140811
  Transmission Date: 20150326
  Serious: Yes (Other)
  Sender: FDA-Public Use
  Company Number: None

PATIENT
  Age: 69 Year
  Sex: Male

DRUGS (1)
  1. NEXAVAR [Suspect]
     Active Substance: SORAFENIB
     Indication: HEPATIC CANCER
     Route: 048
     Dates: start: 20140708, end: 20140807

REACTIONS (5)
  - Ulcer [None]
  - Confusional state [None]
  - Fluid retention [None]
  - Decreased appetite [None]
  - Refusal of treatment by patient [None]

NARRATIVE: CASE EVENT DATE: 20140708
